FAERS Safety Report 9840464 (Version 1)
Quarter: 2013Q4

REPORT INFORMATION
  Report Type: Spontaneous
  Country: BR (occurrence: None)
  Receive Date: 20131211
  Receipt Date: 20131211
  Transmission Date: 20140711
  Serious: Yes (Life-Threatening)
  Sender: FDA-Public Use
  Company Number: SPV1-2010-01967

PATIENT
  Age: 11 Year
  Sex: Male

DRUGS (3)
  1. ELAPRASE [Suspect]
     Indication: MUCOPOLYSACCHARIDOSIS II
     Dosage: 2 UNK, 1X/WEEK, IV DRIP
     Route: 041
     Dates: start: 200802
  2. BENADRYL /00000402/ (DIPHENYDRAMINE HYDROCHLORIDE) [Concomitant]
  3. FLEBOCORTID (HYDROCORTISONE SODIUM SUCCINATE) [Concomitant]

REACTIONS (12)
  - Laryngeal oedema [None]
  - Infusion related reaction [None]
  - Stridor [None]
  - Tonsillar inflammation [None]
  - Renal impairment [None]
  - Cyanosis [None]
  - Urticaria [None]
  - Erythema [None]
  - Tachypnoea [None]
  - Dyspnoea [None]
  - Cough [None]
  - Rash [None]
